FAERS Safety Report 11345827 (Version 2)
Quarter: 2015Q3

REPORT INFORMATION
  Report Type: Spontaneous
  Country: JP (occurrence: JP)
  Receive Date: 20150806
  Receipt Date: 20150814
  Transmission Date: 20151125
  Serious: Yes (Hospitalization)
  Sender: FDA-Public Use
  Company Number: JP-JNJFOC-20150800949

PATIENT
  Age: 83 Year
  Sex: Female
  Weight: 43 kg

DRUGS (10)
  1. PREDONINE [Concomitant]
     Active Substance: PREDNISOLONE\PREDNISOLONE ACETATE\PREDNISOLONE SODIUM SUCCINATE
     Route: 065
  2. LIMAPROST ALFADEX [Concomitant]
     Active Substance: LIMAPROST
     Route: 048
  3. ATARAX-P [Concomitant]
     Active Substance: HYDROXYZINE HYDROCHLORIDE
     Route: 065
  4. PLETAAL [Concomitant]
     Active Substance: CILOSTAZOL
     Route: 048
  5. SIMPONI [Suspect]
     Active Substance: GOLIMUMAB
     Indication: RHEUMATOID ARTHRITIS
     Route: 058
     Dates: start: 20150330
  6. CELECOX [Concomitant]
     Active Substance: CELECOXIB
     Route: 048
  7. EDIROL [Concomitant]
     Active Substance: ELDECALCITOL
     Route: 048
  8. REBAMIPIDE [Concomitant]
     Active Substance: REBAMIPIDE
     Route: 048
  9. JZOLOFT [Concomitant]
     Active Substance: SERTRALINE HYDROCHLORIDE
     Route: 048
  10. DEPAS [Concomitant]
     Active Substance: ETIZOLAM
     Route: 048

REACTIONS (1)
  - Hepatitis B [Recovering/Resolving]

NARRATIVE: CASE EVENT DATE: 20150525
